FAERS Safety Report 5571144-6 (Version None)
Quarter: 2007Q4

REPORT INFORMATION
  Report Type: 
  Country: None (occurrence: None)
  Receive Date: 20071221
  Receipt Date: 20071210
  Transmission Date: 20080405
  Serious: Yes (Congenital Anomaly)
  Sender: FDA-Public Use
  Company Number: GB-ROCHE-536628

PATIENT

DRUGS (1)
  1. ROACCUTANE [Suspect]
     Indication: ACNE
     Dates: start: 19980313, end: 19980801

REACTIONS (1)
  - CLEFT PALATE [None]
